FAERS Safety Report 5946720-9 (Version None)
Quarter: 2008Q4

REPORT INFORMATION
  Report Type: 
  Country: None (occurrence: None)
  Receive Date: 20081110
  Receipt Date: 20081013
  Transmission Date: 20090506
  Serious: No
  Sender: FDA-Public Use
  Company Number: A0751589A

PATIENT

DRUGS (2)
  1. ALTABAX [Suspect]
     Route: 061
     Dates: start: 20080801, end: 20080801
  2. NO CONCURRENT MEDICATION [Concomitant]

REACTIONS (1)
  - APPLICATION SITE IRRITATION [None]
